FAERS Safety Report 24412112 (Version 1)
Quarter: 2024Q4

REPORT INFORMATION
  Report Type: Spontaneous
  Country: US (occurrence: US)
  Receive Date: 20241008
  Receipt Date: 20241008
  Transmission Date: 20250114
  Serious: Yes (Hospitalization)
  Sender: MYLAN
  Company Number: US-MYLANLABS-2024M1090397

PATIENT
  Age: 70 Year
  Sex: Female

DRUGS (1)
  1. FUROSEMIDE [Suspect]
     Active Substance: FUROSEMIDE
     Indication: Renal failure
     Dosage: UNK
     Route: 065

REACTIONS (3)
  - Acute febrile neutrophilic dermatosis [Recovered/Resolved]
  - Encephalopathy [Unknown]
  - Off label use [Unknown]
